FAERS Safety Report 6570383-5 (Version None)
Quarter: 2010Q1

REPORT INFORMATION
  Report Type: 
  Country: None (occurrence: None)
  Receive Date: 20100204
  Receipt Date: 20081230
  Transmission Date: 20100710
  Serious: No
  Sender: FDA-Public Use
  Company Number: A0762073A

PATIENT
  Age: 61 Year
  Sex: Female

DRUGS (17)
  1. ARIXTRA [Suspect]
     Dosage: 5MG PER DAY
     Route: 058
     Dates: start: 20070501
  2. PREDNISONE [Concomitant]
  3. PLAQUENIL [Concomitant]
  4. SIMVASTATIN [Concomitant]
  5. AMIODARONE HCL [Concomitant]
  6. AMLODIPINE [Concomitant]
  7. ASPIRIN [Concomitant]
  8. BENAZEPRIL HYDROCHLORIDE [Concomitant]
  9. CALCITRIOL [Concomitant]
  10. CLONIDINE [Concomitant]
  11. FOSAMAX [Concomitant]
  12. FUROSEMIDE [Concomitant]
  13. KLOR-CON [Concomitant]
  14. NIFEREX [Concomitant]
  15. SYNTHROID [Concomitant]
  16. VITAMIN [Concomitant]
  17. CITRACAL [Concomitant]

REACTIONS (1)
  - ALOPECIA [None]
